FAERS Safety Report 4554479-5 (Version None)
Quarter: 2005Q1

REPORT INFORMATION
  Report Type: 
  Country: None (occurrence: None)
  Receive Date: 20050111
  Receipt Date: 20041220
  Transmission Date: 20050727
  Serious: Yes (Other)
  Sender: FDA-Public Use
  Company Number: 2250051-2005-00012

PATIENT

DRUGS (1)
  1. RHOGAM [Suspect]

REACTIONS (1)
  - BLINDNESS [None]
